FAERS Safety Report 7415578-3 (Version None)
Quarter: 2011Q2

REPORT INFORMATION
  Report Type: 
  Country: None (occurrence: None)
  Receive Date: 20110414
  Receipt Date: 20110405
  Transmission Date: 20111010
  Serious: Yes (Life-Threatening, Other)
  Sender: FDA-Public Use
  Company Number: US-JNJFOC-20110402682

PATIENT
  Age: 74 Year
  Sex: Female

DRUGS (2)
  1. BENADRYL [Suspect]
     Indication: SINUSITIS
     Route: 048
  2. BENADRYL [Suspect]
     Route: 048

REACTIONS (3)
  - DYSSTASIA [None]
  - GAIT DISTURBANCE [None]
  - COMA [None]
